FAERS Safety Report 7422844-4 (Version None)
Quarter: 2011Q2

REPORT INFORMATION
  Report Type: 
  Country: None (occurrence: None)
  Receive Date: 20110414
  Receipt Date: 20110414
  Transmission Date: 20111010
  Serious: No
  Sender: FDA-Public Use
  Company Number: None

PATIENT
  Age: 67 Year
  Sex: Male
  Weight: 74.4 kg

DRUGS (1)
  1. THALIDOMIDE [Suspect]
     Dosage: 100 MG EVERY DAY PO
     Route: 048
     Dates: start: 20110126, end: 20110202

REACTIONS (1)
  - RASH [None]
